FAERS Safety Report 19718206 (Version 1)
Quarter: 2021Q3

REPORT INFORMATION
  Report Type: Spontaneous
  Country: CA (occurrence: CA)
  Receive Date: 20210819
  Receipt Date: 20210819
  Transmission Date: 20211014
  Serious: Yes (Other)
  Sender: FDA-Public Use
  Company Number: CA-PFIZER INC-2018256348

PATIENT
  Age: 60 Year
  Sex: Female

DRUGS (9)
  1. XELJANZ [Suspect]
     Active Substance: TOFACITINIB CITRATE
     Dosage: 5 MG, 2X/DAY
     Route: 048
     Dates: start: 20180808
  2. VITAMIN D3 [Concomitant]
     Active Substance: CHOLECALCIFEROL
     Dosage: 1000 IU, UNK
     Route: 048
  3. METHOTREXATE SODIUM. [Suspect]
     Active Substance: METHOTREXATE SODIUM
     Indication: RHEUMATOID ARTHRITIS
     Dosage: 20 MG, WEEKLY
     Route: 048
  4. VALTREX [Concomitant]
     Active Substance: VALACYCLOVIR HYDROCHLORIDE
     Dosage: 500 MG, DAILY
     Route: 048
  5. XELJANZ [Suspect]
     Active Substance: TOFACITINIB CITRATE
     Indication: RHEUMATOID ARTHRITIS
     Dosage: 5 MG, 2X/DAY
     Route: 048
     Dates: start: 20180718
  6. HUMIRA [Concomitant]
     Active Substance: ADALIMUMAB
     Indication: RHEUMATOID ARTHRITIS
     Dosage: UNK
     Dates: start: 2005
  7. XELJANZ [Suspect]
     Active Substance: TOFACITINIB CITRATE
     Dosage: 5 MG, 2X/DAY
     Route: 048
     Dates: start: 20210424
  8. FOLIC ACID. [Concomitant]
     Active Substance: FOLIC ACID
     Indication: RHEUMATOID ARTHRITIS
     Dosage: 5 MG, DAILY, (EXCEPT DAYS OF MTX)
     Route: 048
  9. FOSAVANCE [Concomitant]
     Active Substance: ALENDRONATE SODIUM\CHOLECALCIFEROL
     Dosage: UNK, (70?5,6000 MG?UNIT Q 7 DAYS)
     Route: 048

REACTIONS (16)
  - Alanine aminotransferase increased [Unknown]
  - Therapeutic product effect incomplete [Unknown]
  - Rales [Unknown]
  - Osteopenia [Unknown]
  - Osteoarthritis [Unknown]
  - Swelling [Unknown]
  - Trigger finger [Recovering/Resolving]
  - Paraesthesia [Unknown]
  - Dry eye [Unknown]
  - Tenosynovitis [Unknown]
  - Pain [Not Recovered/Not Resolved]
  - Raynaud^s phenomenon [Unknown]
  - Joint stiffness [Not Recovered/Not Resolved]
  - Trigger finger [Unknown]
  - Back injury [Unknown]
  - Sciatica [Unknown]

NARRATIVE: CASE EVENT DATE: 202103
